FAERS Safety Report 7946852-X (Version None)
Quarter: 2011Q4

REPORT INFORMATION
  Report Type: 
  Country: None (occurrence: None)
  Receive Date: 20111129
  Receipt Date: 20111118
  Transmission Date: 20120403
  Serious: Yes (Other)
  Sender: FDA-Public Use
  Company Number: PHEH2011US010067

PATIENT
  Sex: Female

DRUGS (9)
  1. RAPAMUNE [Concomitant]
  2. PROZAC [Concomitant]
  3. DEPAKOTE [Concomitant]
  4. AFINITOR [Suspect]
     Indication: TUBERCULOSIS
     Dosage: 05 MG, UNK
     Route: 048
     Dates: start: 20110330
  5. ASCORBIC ACID [Concomitant]
  6. RETIGABINE [Concomitant]
  7. LAMICTAL [Concomitant]
  8. INSULIN [Concomitant]
  9. VITAMIN D [Concomitant]

REACTIONS (6)
  - HYPOTHYROIDISM [None]
  - WEIGHT INCREASED [None]
  - TOOTH DISCOLOURATION [None]
  - ABDOMINAL DISTENSION [None]
  - TRICHORRHEXIS [None]
  - GASTROOESOPHAGEAL REFLUX DISEASE [None]
